FAERS Safety Report 22823702 (Version 12)
Quarter: 2025Q3

REPORT INFORMATION
  Report Type: Spontaneous
  Country: US (occurrence: US)
  Receive Date: 20230815
  Receipt Date: 20250821
  Transmission Date: 20251021
  Serious: Yes (Hospitalization)
  Sender: PFIZER
  Company Number: US-PFIZER INC-PV202300139190

PATIENT
  Age: 76 Year
  Sex: Male

DRUGS (4)
  1. CIBINQO [Suspect]
     Active Substance: ABROCITINIB
     Indication: Dermatitis atopic
     Dosage: 200 MG, 1X/DAY
     Route: 048
     Dates: start: 202307
  2. CIBINQO [Suspect]
     Active Substance: ABROCITINIB
     Dosage: 100 MG, 1X/DAY
     Route: 048
  3. CIBINQO [Suspect]
     Active Substance: ABROCITINIB
     Dosage: 200 MG, 1X/DAY
  4. CIBINQO [Suspect]
     Active Substance: ABROCITINIB

REACTIONS (4)
  - Staphylococcal infection [Not Recovered/Not Resolved]
  - Dermatitis atopic [Recovered/Resolved]
  - Increased tendency to bruise [Unknown]
  - Gout [Unknown]
